FAERS Safety Report 6888909 (Version 4)
Quarter: 2018Q4

REPORT INFORMATION
  Report Type: Spontaneous
  Country: JP (occurrence: JP)
  Receive Date: 20090122
  Receipt Date: 20181212
  Transmission Date: 20190205
  Serious: Yes (Life-Threatening)
  Sender: FDA-Public Use
  Company Number: PHHY2009JP01577

PATIENT
  Age: 33 Year
  Sex: Male
  Weight: 69 kg

DRUGS (4)
  1. AMLODIPINE BESILATE [Concomitant]
     Active Substance: AMLODIPINE BESYLATE
     Indication: PRODUCT USED FOR UNKNOWN INDICATION
     Dosage: 5 MG, UNK
     Route: 048
  2. DIOVAN [Suspect]
     Active Substance: VALSARTAN
     Indication: MALIGNANT HYPERTENSION
     Dosage: 80 MG, QD
     Route: 048
     Dates: start: 200703, end: 20070531
  3. DIOVAN [Suspect]
     Active Substance: VALSARTAN
     Dosage: 80 MG, QD
     Route: 048
     Dates: start: 20070609
  4. DIOVAN [Suspect]
     Active Substance: VALSARTAN
     Dosage: 40 MG, QD
     Route: 048
     Dates: start: 20070604, end: 20070609

REACTIONS (3)
  - Abdominal pain [Unknown]
  - Computerised tomogram abnormal [Unknown]
  - Intestinal ischaemia [Recovered/Resolved]

NARRATIVE: CASE EVENT DATE: 20070604
